FAERS Safety Report 7578930-1 (Version None)
Quarter: 2011Q2

REPORT INFORMATION
  Report Type: 
  Country: None (occurrence: None)
  Receive Date: 20110628
  Receipt Date: 20100401
  Transmission Date: 20111010
  Serious: Yes (Other)
  Sender: FDA-Public Use
  Company Number: PHEH2008US08907

PATIENT
  Sex: Female

DRUGS (30)
  1. PERCOCET [Concomitant]
  2. PHENERGAN HCL [Concomitant]
  3. FASLODEX [Concomitant]
  4. AMBIEN [Concomitant]
     Dosage: UNK
  5. PAXIL [Concomitant]
     Dosage: UNK
  6. ZITHROMAX [Concomitant]
     Dosage: UNK
  7. NEXIUM [Concomitant]
  8. NEURONTIN [Concomitant]
     Dosage: UNK
  9. AVELOX [Concomitant]
  10. FLAGYL [Concomitant]
     Dosage: 500 MG, QID
  11. FULVESTRANT [Concomitant]
  12. LEVAQUIN [Concomitant]
     Dosage: UNK
  13. VIOXX [Concomitant]
     Dosage: UNK
  14. ZYRTEC [Concomitant]
     Dosage: UNK
  15. ZOMETA [Suspect]
     Dates: start: 20011114, end: 20070113
  16. RADIATION [Concomitant]
  17. DURAGESIC-100 [Concomitant]
     Dosage: UNK
  18. TAXOTERE [Concomitant]
     Dosage: UNK
  19. DECADRON [Concomitant]
     Dosage: UNK
  20. KYTRIL [Concomitant]
     Dosage: UNK
  21. AREDIA [Suspect]
     Dates: start: 19980818, end: 20011114
  22. MEGACE [Concomitant]
     Dosage: UNK
  23. FLONASE [Concomitant]
     Dosage: UNK
  24. BACTRIM [Concomitant]
     Dosage: UNK
  25. ALDACTONE [Concomitant]
     Dosage: UNK
  26. ARIMIDEX [Concomitant]
  27. ZOFRAN [Concomitant]
     Dosage: UNK
  28. NOLVADEX [Concomitant]
     Dosage: 10 MG 2 TIMES DAILY
  29. METOPROLOL TARTRATE [Concomitant]
     Dosage: UNK
  30. LASIX [Concomitant]
     Dosage: UNK

REACTIONS (34)
  - INJURY [None]
  - ANXIETY [None]
  - ANHEDONIA [None]
  - OSTEOMYELITIS [None]
  - METASTASES TO BONE [None]
  - CARDIAC FAILURE CONGESTIVE [None]
  - LYMPHADENOPATHY [None]
  - PLEURAL EFFUSION [None]
  - SINUS HEADACHE [None]
  - PULMONARY CALCIFICATION [None]
  - OSTEOPENIA [None]
  - ARTHRITIS [None]
  - GINGIVAL SWELLING [None]
  - CHRONIC OBSTRUCTIVE PULMONARY DISEASE [None]
  - DYSPNOEA [None]
  - RENAL CYST [None]
  - OSTEONECROSIS OF JAW [None]
  - BONE DISORDER [None]
  - ISCHAEMIA [None]
  - SINUSITIS [None]
  - INFARCTION [None]
  - HYPERTENSION [None]
  - ARTHROPATHY [None]
  - PULMONARY FIBROSIS [None]
  - HEPATIC CYST [None]
  - PAIN [None]
  - TOOTH ABSCESS [None]
  - METASTASES TO LUNG [None]
  - HIATUS HERNIA [None]
  - DISABILITY [None]
  - NEUROPATHY PERIPHERAL [None]
  - THROMBOCYTOPENIA [None]
  - METASTASES TO LIVER [None]
  - NASAL SEPTUM DEVIATION [None]
